FAERS Safety Report 10338467 (Version 4)
Quarter: 2014Q3

REPORT INFORMATION
  Report Type: Spontaneous
  Country: JP (occurrence: None)
  Receive Date: 20140721
  Receipt Date: 20140903
  Transmission Date: 20150326
  Serious: Yes (Other)
  Sender: FDA-Public Use
  Company Number: JP-016437

PATIENT
  Age: 50 Year
  Sex: Male
  Weight: 69 kg

DRUGS (21)
  1. RANMARK [Concomitant]
     Active Substance: DENOSUMAB
  2. ESTRAMUSTINE [Concomitant]
     Active Substance: ESTRAMUSTINE
  3. LYRICA [Concomitant]
     Active Substance: PREGABALIN
  4. JUZENTAIHOTO [Concomitant]
  5. XTANDI [Suspect]
     Active Substance: ENZALUTAMIDE
     Indication: HORMONE-REFRACTORY PROSTATE CANCER
     Route: 048
     Dates: start: 20140611
  6. CASODEX [Concomitant]
     Active Substance: BICALUTAMIDE
  7. DECADRON [Concomitant]
     Active Substance: DEXAMETHASONE
  8. CYMBALTA [Concomitant]
     Active Substance: DULOXETINE HYDROCHLORIDE
  9. HACHIAZULE [Concomitant]
  10. GRAN [Concomitant]
     Active Substance: FILGRASTIM
  11. BFLUID [Concomitant]
     Active Substance: AMINO ACIDS\DEXTROSE\ELECTROLYTES NOS\VITAMINS
  12. ALLOID G [Concomitant]
     Active Substance: SODIUM ALGINATE
  13. GASMOTIN [Concomitant]
     Active Substance: MOSAPRIDE CITRATE
  14. OXYCONTIN [Suspect]
     Active Substance: OXYCODONE HYDROCHLORIDE
     Indication: CANCER PAIN
     Dates: start: 20130205, end: 20140306
  15. ZOLADEX [Concomitant]
     Active Substance: GOSERELIN ACETATE
  16. NOVAMIN [Concomitant]
     Active Substance: PROCHLORPERAZINE MALEATE
  17. OXINORM [Concomitant]
     Active Substance: OXYCODONE HYDROCHLORIDE
  18. MAGMITT [Concomitant]
     Active Substance: MAGNESIUM OXIDE
  19. DEGARELIX (GONAX) 80 MG [Suspect]
     Active Substance: DEGARELIX
     Indication: HORMONE-REFRACTORY PROSTATE CANCER
     Dosage: 80MG 1X/MONTH SUCUTANEOUS
     Route: 058
     Dates: start: 20131206
  20. FENTOS [Concomitant]
     Active Substance: FENTANYL
  21. PURSENNID [Concomitant]
     Active Substance: SENNOSIDES A AND B CALCIUM

REACTIONS (11)
  - Malignant neoplasm progression [None]
  - Hypoaesthesia [None]
  - Pancytopenia [None]
  - Urinary retention [None]
  - Prostatic specific antigen increased [None]
  - Bone marrow failure [None]
  - Gastritis [None]
  - Intentional product misuse [None]
  - Abdominal distension [None]
  - Constipation [None]
  - VIIth nerve paralysis [None]

NARRATIVE: CASE EVENT DATE: 20140702
